FAERS Safety Report 5154499-6 (Version None)
Quarter: 2006Q4

REPORT INFORMATION
  Report Type: 
  Country: None (occurrence: None)
  Receive Date: 20061114
  Receipt Date: 20061110
  Transmission Date: 20070319
  Serious: Yes (Life-Threatening)
  Sender: FDA-Public Use
  Company Number: TCI2006A05112

PATIENT
  Age: 80 Year
  Sex: Male

DRUGS (2)
  1. LEUPROLIDE ACETATE [Suspect]
     Indication: PROSTATE CANCER
     Dosage: 11.25 MG (11.25 MMG, 1 IN 12 WK) SUBCUTANEOUS
     Route: 058
     Dates: start: 20051001
  2. CASODEX [Concomitant]

REACTIONS (3)
  - DIALYSIS [None]
  - PNEUMONIA [None]
  - RENAL FAILURE [None]
